FAERS Safety Report 6046326-X (Version None)
Quarter: 2009Q1

REPORT INFORMATION
  Report Type: 
  Country: None (occurrence: None)
  Receive Date: 20090121
  Receipt Date: 20090121
  Transmission Date: 20090719
  Serious: No
  Sender: FDA-Public Use
  Company Number: None

PATIENT
  Age: 38 Year
  Sex: Female
  Weight: 62.5964 kg

DRUGS (1)
  1. CELEXA [Suspect]
     Indication: STRESS
     Dates: start: 20081101, end: 20081229

REACTIONS (4)
  - BURNING SENSATION [None]
  - DRUG HYPERSENSITIVITY [None]
  - RASH MACULO-PAPULAR [None]
  - RASH PRURITIC [None]
